FAERS Safety Report 6376555-7 (Version None)
Quarter: 2009Q3

REPORT INFORMATION
  Report Type: 
  Country: None (occurrence: None)
  Receive Date: 20090925
  Receipt Date: 20090914
  Transmission Date: 20100115
  Serious: Yes (Other)
  Sender: FDA-Public Use
  Company Number: FR-PFIZER INC-2009231388

PATIENT

DRUGS (2)
  1. CELSENTRI [Suspect]
     Indication: HIV INFECTION
  2. DRUG, UNSPECIFIED [Concomitant]

REACTIONS (1)
  - INTRACRANIAL PRESSURE INCREASED [None]
